FAERS Safety Report 9637919 (Version 2)
Quarter: 2013Q4

REPORT INFORMATION
  Report Type: Spontaneous
  Country: US (occurrence: US)
  Receive Date: 20131022
  Receipt Date: 20131022
  Transmission Date: 20140711
  Serious: No
  Sender: FDA-Public Use
  Company Number: US-TEVA-431431USA

PATIENT
  Age: 42 Year
  Sex: Female
  Weight: 67.65 kg

DRUGS (2)
  1. PARAGARD 380A [Suspect]
     Indication: CONTRACEPTION
     Route: 015
     Dates: start: 20130708, end: 20130906
  2. VALTREX [Concomitant]
     Dates: start: 20130715, end: 20130906

REACTIONS (4)
  - Fungal infection [Recovered/Resolved]
  - Herpes virus infection [Recovered/Resolved]
  - Menorrhagia [Recovered/Resolved]
  - Abdominal pain [Recovered/Resolved]
